FAERS Safety Report 7998620-0 (Version None)
Quarter: 2011Q4

REPORT INFORMATION
  Report Type: 
  Country: None (occurrence: None)
  Receive Date: 20111221
  Receipt Date: 20111215
  Transmission Date: 20120403
  Serious: Yes (Hospitalization)
  Sender: FDA-Public Use
  Company Number: PHHY2011GB109272

PATIENT
  Age: 40 Year
  Sex: Female

DRUGS (8)
  1. BRINZOLAMIDE [Concomitant]
     Dosage: UNK
  2. CO-DYDRAMOL [Concomitant]
     Dosage: UNK
  3. FOLIC ACID [Concomitant]
     Dosage: UNK
  4. BIMATOPROST [Concomitant]
     Dosage: UNK
  5. AMOXICILLIN [Concomitant]
     Dosage: UNK
  6. ALBUTEROL SULFATE AUTOHALER [Concomitant]
     Dosage: UNK
  7. DOXYCYCLINE [Suspect]
     Dosage: 200 MG, UNK
     Route: 048
     Dates: start: 20111103, end: 20111103
  8. METHOTREXATE [Interacting]
     Dosage: UNK

REACTIONS (2)
  - TOXICITY TO VARIOUS AGENTS [None]
  - DRUG INTERACTION [None]
